FAERS Safety Report 17001567 (Version 1)
Quarter: 2019Q4

REPORT INFORMATION
  Report Type: Spontaneous
  Country: US (occurrence: US)
  Receive Date: 20191106
  Receipt Date: 20191106
  Transmission Date: 20200122
  Serious: No
  Sender: FDA-Public Use
  Company Number: US-TEVA-2019-US-1131593

PATIENT
  Sex: Male

DRUGS (1)
  1. TEVA BUPRENORPHINE [Suspect]
     Active Substance: BUPRENORPHINE
     Dosage: DOSE STRENGTH:  20 MCG/HR
     Route: 062

REACTIONS (3)
  - Product adhesion issue [Unknown]
  - Irritability [Unknown]
  - Urticaria [Unknown]
